FAERS Safety Report 4808828-0 (Version None)
Quarter: 2005Q4

REPORT INFORMATION
  Report Type: 
  Country: None (occurrence: None)
  Receive Date: 20051021
  Receipt Date: 20021119
  Transmission Date: 20060501
  Serious: No
  Sender: FDA-Public Use
  Company Number: AU_021105699

PATIENT
  Age: 37 Year
  Sex: Male

DRUGS (1)
  1. ZYPREXA [Suspect]
     Indication: PSYCHOTIC DISORDER
     Dosage: 10 MG/DAY
     Dates: start: 20020501

REACTIONS (1)
  - WEIGHT INCREASED [None]
